FAERS Safety Report 24888425 (Version 1)
Quarter: 2025Q1

REPORT INFORMATION
  Report Type: Spontaneous
  Country: US (occurrence: None)
  Receive Date: 20250126
  Receipt Date: 20250126
  Transmission Date: 20250409
  Serious: Yes (Other)
  Sender: FDA-CTU
  Company Number: None

PATIENT
  Age: 65 Year
  Sex: Female
  Weight: 51.75 kg

DRUGS (6)
  1. OSELTAMIVIR PHOSPHATE [Suspect]
     Active Substance: OSELTAMIVIR PHOSPHATE
     Indication: Influenza
     Dosage: 10 CAPSULES TWICE A DAY ORAL
     Route: 048
     Dates: start: 20250111, end: 20250112
  2. FISH OIL [Concomitant]
     Active Substance: FISH OIL
  3. calcium pills [Concomitant]
  4. NM-6603 [Concomitant]
     Active Substance: NM-6603
  5. COENZYME Q10 [Concomitant]
     Active Substance: DIETARY SUPPLEMENT\UBIDECARENONE
  6. MELATONIN [Concomitant]
     Active Substance: MELATONIN

REACTIONS (2)
  - Tinnitus [None]
  - Wrong technique in product usage process [None]

NARRATIVE: CASE EVENT DATE: 20250111
